FAERS Safety Report 15602683 (Version 1)
Quarter: 2018Q4

REPORT INFORMATION
  Report Type: Spontaneous
  Country: US (occurrence: US)
  Receive Date: 20181107
  Receipt Date: 20181107
  Transmission Date: 20190205
  Serious: Yes (Life-Threatening, Hospitalization)
  Sender: FDA-Public Use
  Company Number: None

PATIENT
  Age: 51 Year
  Sex: Male

DRUGS (2)
  1. LISINOPRIL/HCTZ [Suspect]
     Active Substance: HYDROCHLOROTHIAZIDE\LISINOPRIL
  2. NSAID (UNKNOWN) [Suspect]
     Active Substance: UNSPECIFIED INGREDIENT

REACTIONS (3)
  - Self-medication [None]
  - Acute kidney injury [None]
  - Treatment noncompliance [None]

NARRATIVE: CASE EVENT DATE: 20180813
